FAERS Safety Report 18182319 (Version 2)
Quarter: 2020Q4

REPORT INFORMATION
  Report Type: Spontaneous
  Country: US (occurrence: US)
  Receive Date: 20200821
  Receipt Date: 20201006
  Transmission Date: 20210113
  Serious: No
  Sender: FDA-Public Use
  Company Number: US-GE HEALTHCARE LIFE SCIENCES-2020CSU002414

PATIENT
  Age: 76 Year
  Sex: Female

DRUGS (4)
  1. SALINE [SODIUM CHLORIDE] [Concomitant]
     Active Substance: SODIUM CHLORIDE
     Dosage: 40 ML, 4 CC/SEC
  2. SALINE [SODIUM CHLORIDE] [Concomitant]
     Active Substance: SODIUM CHLORIDE
     Dosage: 20 ML, 2CC/SEC
  3. OMNIPAQUE [Suspect]
     Active Substance: IOHEXOL
     Indication: PRODUCT USED FOR UNKNOWN INDICATION
  4. OMNIPAQUE [Suspect]
     Active Substance: IOHEXOL
     Indication: ANGIOGRAM
     Dosage: 85ML, AT THE RATE OF 4ML/SEC, ONCE
     Route: 042
     Dates: start: 20200530, end: 20200530

REACTIONS (3)
  - Product administration error [Unknown]
  - No adverse event [Recovered/Resolved]
  - Intravascular gas [Unknown]

NARRATIVE: CASE EVENT DATE: 20200530
